FAERS Safety Report 5385268-X (Version None)
Quarter: 2007Q3

REPORT INFORMATION
  Report Type: 
  Country: None (occurrence: None)
  Receive Date: 20070709
  Receipt Date: 20070709
  Transmission Date: 20080115
  Serious: Yes (Hospitalization)
  Sender: FDA-Public Use
  Company Number: None

PATIENT
  Sex: Female
  Weight: 104 kg

DRUGS (6)
  1. MERCAPTOPURINE [Suspect]
     Dosage: 4620 MG
     Dates: end: 20070618
  2. METHOTREXATE [Suspect]
     Dosage: 7305 MG
     Dates: end: 20070614
  3. VINCRISTINE SULFATE [Suspect]
     Dosage: 6 MG
     Dates: end: 20070612
  4. ALLOPURINOL [Suspect]
     Dosage: 12900MG
     Dates: end: 20070626
  5. BACTRIM DS [Suspect]
     Dosage: 1500 MG
     Dates: end: 20070625
  6. LEUCOVORIN CALCIUM [Suspect]
     Dosage: 465 MG
     Dates: end: 20070616

REACTIONS (4)
  - ATRIAL FIBRILLATION [None]
  - HYPOTENSION [None]
  - MENISCUS LESION [None]
  - OSTEOARTHRITIS [None]
